FAERS Safety Report 6820683-6 (Version None)
Quarter: 2010Q3

REPORT INFORMATION
  Report Type: 
  Country: None (occurrence: None)
  Receive Date: 20100707
  Receipt Date: 20100623
  Transmission Date: 20110219
  Serious: Yes (Life-Threatening)
  Sender: FDA-Public Use
  Company Number: JP-ELI_LILLY_AND_COMPANY-JP201005005957

PATIENT
  Sex: Female

DRUGS (10)
  1. CYMBALTA [Suspect]
     Indication: DEPRESSION
     Dosage: 20 MG, DAILY (1/D)
     Route: 048
     Dates: start: 20100512, end: 20100517
  2. PAXIL [Concomitant]
     Indication: DEPRESSION
     Dosage: 20 MG, DAILY (1/D)
     Route: 048
     Dates: start: 20100303, end: 20100427
  3. PAXIL [Concomitant]
     Dosage: 30 MG, DAILY (1/D)
     Route: 048
     Dates: start: 20100428, end: 20100511
  4. PAXIL [Concomitant]
     Dosage: 20 MG, DAILY (1/D)
     Route: 048
     Dates: start: 20100512
  5. MEILAX [Concomitant]
     Indication: DEPRESSION
     Dosage: 2 MG, DAILY (1/D)
     Route: 048
     Dates: start: 20100303
  6. SEPAZON [Concomitant]
     Indication: DEPRESSION
     Dosage: 0.5 MG, 3/D
     Route: 048
     Dates: start: 20100414
  7. PZC [Concomitant]
     Indication: DEPRESSION
     Dosage: 1 MG, 3/D
     Route: 048
     Dates: start: 20100414
  8. LENDORMIN [Concomitant]
     Indication: INSOMNIA
     Dosage: 0.25 MG, DAILY (1/D)
     Route: 048
     Dates: start: 20100414
  9. GASMOTIN [Concomitant]
     Indication: DEPRESSION
     Dosage: 5 MG, 3/D
     Route: 048
     Dates: start: 20100414
  10. MAGLAX [Concomitant]
     Indication: CONSTIPATION
     Dosage: 500 MG, DAILY (1/D)
     Route: 048
     Dates: start: 20100324

REACTIONS (2)
  - SELF INJURIOUS BEHAVIOUR [None]
  - SUICIDAL IDEATION [None]
